FAERS Safety Report 20933537 (Version 3)
Quarter: 2022Q2

REPORT INFORMATION
  Report Type: Spontaneous
  Country: IT (occurrence: IT)
  Receive Date: 20220608
  Receipt Date: 20220628
  Transmission Date: 20220721
  Serious: Yes (Hospitalization, Other)
  Sender: FDA-Public Use
  Company Number: IT-009507513-2206ITA000641

PATIENT
  Age: 79 Year
  Sex: Male
  Weight: 176 kg

DRUGS (4)
  1. ZERBAXA [Suspect]
     Active Substance: CEFTOLOZANE SULFATE\TAZOBACTAM SODIUM
     Indication: Pneumonia
     Dosage: 3 GRAM, Q8H, DAILY
     Route: 042
     Dates: end: 20220428
  2. ZERBAXA [Suspect]
     Active Substance: CEFTOLOZANE SULFATE\TAZOBACTAM SODIUM
     Indication: Infection
  3. ZERBAXA [Suspect]
     Active Substance: CEFTOLOZANE SULFATE\TAZOBACTAM SODIUM
     Indication: Pneumonitis
  4. TAPAZOLE [Suspect]
     Active Substance: METHIMAZOLE
     Route: 048

REACTIONS (4)
  - Hepatotoxicity [Recovering/Resolving]
  - Hepatitis cholestatic [Recovering/Resolving]
  - Hyperbilirubinaemia [Recovering/Resolving]
  - Overdose [Unknown]

NARRATIVE: CASE EVENT DATE: 20220401
